FAERS Safety Report 21979215 (Version 1)
Quarter: 2023Q1

REPORT INFORMATION
  Report Type: Spontaneous
  Country: US (occurrence: None)
  Receive Date: 20230209
  Receipt Date: 20230209
  Transmission Date: 20230418
  Serious: Yes (Disabling)
  Sender: FDA-Public Use
  Company Number: None

PATIENT
  Age: 74 Year
  Sex: Female
  Weight: 113.6 kg

DRUGS (1)
  1. ARTIFICIAL TEARS LUBRICANT EYE DROPS (CARBOXYMETHYLCELLULOSE SODIUM) [Suspect]
     Active Substance: CARBOXYMETHYLCELLULOSE SODIUM
     Indication: Dry eye
     Dates: start: 20220601, end: 20220731

REACTIONS (3)
  - Ulcerative keratitis [None]
  - Pseudomonas test positive [None]
  - Bacterial infection [None]

NARRATIVE: CASE EVENT DATE: 20220809
